FAERS Safety Report 5143397-X (Version None)
Quarter: 2006Q4

REPORT INFORMATION
  Report Type: 
  Country: None (occurrence: None)
  Receive Date: 20061030
  Receipt Date: 20061016
  Transmission Date: 20070319
  Serious: Yes (Other)
  Sender: FDA-Public Use
  Company Number: HQWYE164217OCT06

PATIENT
  Age: 46 Year
  Sex: Female

DRUGS (4)
  1. EFFEXOR [Suspect]
     Dosage: 150 + 225 MG 1X PER 1 DAY - SEE IMAGE
  2. TRAMADOL HCL [Concomitant]
  3. MIRTAZAPINE [Concomitant]
  4. . [Concomitant]

REACTIONS (6)
  - CONDITION AGGRAVATED [None]
  - DEPRESSIVE SYMPTOM [None]
  - DRUG INEFFECTIVE [None]
  - DRUG WITHDRAWAL SYNDROME [None]
  - NAUSEA [None]
  - SUICIDAL IDEATION [None]
